FAERS Safety Report 6809302-2 (Version None)
Quarter: 2010Q2

REPORT INFORMATION
  Report Type: 
  Country: None (occurrence: None)
  Receive Date: 20100630
  Receipt Date: 20100609
  Transmission Date: 20101027
  Serious: Yes (Other)
  Sender: FDA-Public Use
  Company Number: FR-ASTRAZENECA-2010SE26938

PATIENT
  Age: 618 Month
  Sex: Female

DRUGS (1)
  1. NEXIUM [Suspect]
     Indication: GASTRINOMA
     Route: 048
     Dates: start: 20080301, end: 20090301

REACTIONS (1)
  - CHORIORETINITIS [None]
